FAERS Safety Report 13469232 (Version 1)
Quarter: 2017Q2

REPORT INFORMATION
  Report Type: Spontaneous
  Country: US (occurrence: US)
  Receive Date: 20170421
  Receipt Date: 20170421
  Transmission Date: 20170830
  Serious: No
  Sender: FDA-Public Use
  Company Number: US-009507513-1704USA010874

PATIENT
  Age: 21 Year
  Sex: Female
  Weight: 74.83 kg

DRUGS (2)
  1. ADDERALL [Concomitant]
     Active Substance: AMPHETAMINE ASPARTATE\AMPHETAMINE SULFATE\DEXTROAMPHETAMINE SACCHARATE\DEXTROAMPHETAMINE SULFATE
  2. NEXPLANON [Suspect]
     Active Substance: ETONOGESTREL
     Indication: CONTRACEPTION
     Dosage: IN HER LEFT ARM, FREQUENCY: 3 YEARS
     Route: 059
     Dates: start: 20141022

REACTIONS (2)
  - Weight increased [Unknown]
  - Amenorrhoea [Not Recovered/Not Resolved]
